FAERS Safety Report 11108714 (Version 1)
Quarter: 2015Q2

REPORT INFORMATION
  Report Type: Spontaneous
  Country: US (occurrence: None)
  Receive Date: 20150511
  Receipt Date: 20150511
  Transmission Date: 20150821
  Serious: Yes (Disabling)
  Sender: FDA-Public Use
  Company Number: None

PATIENT
  Age: 8 Day
  Sex: Female
  Weight: 94.8 kg

DRUGS (3)
  1. VITAMIN E [Concomitant]
     Active Substance: .ALPHA.-TOCOPHEROL
  2. CHLORHEXIDINE GLUCONATE 0.12% ORAL RINSE [Suspect]
     Active Substance: CHLORHEXIDINE GLUCONATE
     Indication: ANTIBIOTIC THERAPY
     Route: 048
     Dates: start: 20130708
  3. VIT. D, FOLIC ACID, VIT. B - COMPLEX [Concomitant]
     Active Substance: FOLIC ACID\VITAMINS

REACTIONS (4)
  - Pain in jaw [None]
  - Arthralgia [None]
  - Stomatitis [None]
  - Pain in extremity [None]

NARRATIVE: CASE EVENT DATE: 20130716
